FAERS Safety Report 8192849-7 (Version None)
Quarter: 2012Q1

REPORT INFORMATION
  Report Type: 
  Country: None (occurrence: None)
  Receive Date: 20120308
  Receipt Date: 20120227
  Transmission Date: 20120608
  Serious: Yes (Hospitalization)
  Sender: FDA-Public Use
  Company Number: AU-JNJFOC-20120213641

PATIENT
  Age: 42 Year
  Sex: Male

DRUGS (3)
  1. REMICADE [Suspect]
     Indication: PRODUCT USED FOR UNKNOWN INDICATION
     Route: 042
  2. REMICADE [Suspect]
     Route: 042
  3. REMICADE [Suspect]
     Route: 042

REACTIONS (6)
  - FEELING ABNORMAL [None]
  - NAUSEA [None]
  - THERAPEUTIC RESPONSE DECREASED [None]
  - LOSS OF CONSCIOUSNESS [None]
  - AMNESIA [None]
  - RASH [None]
